FAERS Safety Report 9713020 (Version 1)
Quarter: 2013Q4

REPORT INFORMATION
  Report Type: Spontaneous
  Country: US (occurrence: US)
  Receive Date: 20131126
  Receipt Date: 20131126
  Transmission Date: 20140711
  Serious: No
  Sender: FDA-Public Use
  Company Number: US-BAYER-2013-144531

PATIENT
  Age: 79 Year
  Sex: Female
  Weight: 68.03 kg

DRUGS (3)
  1. ALEVE CAPLET [Suspect]
     Indication: ARTHRITIS
     Dosage: 2 DF, BID
     Route: 048
  2. OMEPRAZOLE [Concomitant]
  3. FISH OIL [Concomitant]

REACTIONS (1)
  - Incorrect dose administered [None]
